FAERS Safety Report 17114018 (Version 2)
Quarter: 2022Q2

REPORT INFORMATION
  Report Type: Spontaneous
  Country: US (occurrence: US)
  Receive Date: 20191205
  Receipt Date: 20220510
  Transmission Date: 20220721
  Serious: Yes (Hospitalization, Other)
  Sender: FDA-Public Use
  Company Number: US-SUN PHARMACEUTICAL INDUSTRIES LTD-2019R1-229553

PATIENT
  Age: 40 Year
  Sex: Female

DRUGS (1)
  1. METHIMAZOLE [Suspect]
     Active Substance: METHIMAZOLE
     Indication: Basedow^s disease
     Dosage: 5 MILLIGRAM, BID
     Route: 065

REACTIONS (3)
  - Agranulocytosis [Recovered/Resolved]
  - Rash erythematous [Recovered/Resolved]
  - Blister [Recovered/Resolved]
